FAERS Safety Report 4688464-X (Version None)
Quarter: 2005Q2

REPORT INFORMATION
  Report Type: 
  Country: None (occurrence: None)
  Receive Date: 20050609
  Receipt Date: 20050525
  Transmission Date: 20051028
  Serious: Yes (Other)
  Sender: FDA-Public Use
  Company Number: 430005M05DEU

PATIENT
  Age: 47 Year
  Sex: Female
  Weight: 65 kg

DRUGS (11)
  1. NOVANTRONE [Suspect]
     Indication: PROGRESSIVE MULTIPLE SCLEROSIS
     Dosage: SEE IMAGE
     Route: 042
     Dates: start: 20010301, end: 20010301
  2. NOVANTRONE [Suspect]
     Indication: PROGRESSIVE MULTIPLE SCLEROSIS
     Dosage: SEE IMAGE
     Route: 042
     Dates: start: 20010401, end: 20010501
  3. NOVANTRONE [Suspect]
     Indication: PROGRESSIVE MULTIPLE SCLEROSIS
     Dosage: SEE IMAGE
     Route: 042
     Dates: start: 20010801, end: 20010801
  4. NOVANTRONE [Suspect]
     Indication: PROGRESSIVE MULTIPLE SCLEROSIS
     Dosage: SEE IMAGE
     Route: 042
     Dates: start: 20011101, end: 20011101
  5. NOVANTRONE [Suspect]
     Indication: PROGRESSIVE MULTIPLE SCLEROSIS
     Dosage: SEE IMAGE
     Route: 042
     Dates: start: 20020301, end: 20020301
  6. NOVANTRONE [Suspect]
     Indication: PROGRESSIVE MULTIPLE SCLEROSIS
     Dosage: SEE IMAGE
     Route: 042
     Dates: start: 20020601, end: 20020601
  7. NOVANTRONE [Suspect]
     Indication: PROGRESSIVE MULTIPLE SCLEROSIS
     Dosage: SEE IMAGE
     Route: 042
     Dates: start: 20020901, end: 20020901
  8. NOVANTRONE [Suspect]
     Indication: PROGRESSIVE MULTIPLE SCLEROSIS
     Dosage: SEE IMAGE
     Route: 042
     Dates: start: 20021201, end: 20021201
  9. NOVANTRONE [Suspect]
     Indication: PROGRESSIVE MULTIPLE SCLEROSIS
     Dosage: SEE IMAGE
     Route: 042
     Dates: start: 20030301, end: 20030301
  10. NOVANTRONE [Suspect]
     Indication: PROGRESSIVE MULTIPLE SCLEROSIS
     Dosage: SEE IMAGE
     Route: 042
     Dates: start: 20030601, end: 20030601
  11. REBIF [Concomitant]

REACTIONS (1)
  - ACUTE PROMYELOCYTIC LEUKAEMIA [None]
